FAERS Safety Report 26143672 (Version 1)
Quarter: 2025Q4

REPORT INFORMATION
  Report Type: Spontaneous
  Country: AR (occurrence: None)
  Receive Date: 20251211
  Receipt Date: 20251211
  Transmission Date: 20260118
  Serious: Yes (Other)
  Sender: UCB
  Company Number: AR-UCBSA-2025077905

PATIENT

DRUGS (2)
  1. NEUPRO [Suspect]
     Active Substance: ROTIGOTINE
     Indication: Parkinson^s disease
     Dosage: 06 MILLIGRAM, ONCE DAILY (QD)
  2. NEUPRO [Suspect]
     Active Substance: ROTIGOTINE
     Dosage: 06 MILLIGRAM, ONCE DAILY (QD)

REACTIONS (3)
  - Condition aggravated [Not Recovered/Not Resolved]
  - Off label use [Unknown]
  - Socioeconomic precarity [Unknown]
